FAERS Safety Report 5098645-1 (Version None)
Quarter: 2006Q3

REPORT INFORMATION
  Report Type: 
  Country: None (occurrence: None)
  Receive Date: 20060907
  Receipt Date: 20060829
  Transmission Date: 20061208
  Serious: Yes (Other)
  Sender: FDA-Public Use
  Company Number: PHBS2006JP13245

PATIENT
  Age: 65 Year
  Sex: Female

DRUGS (4)
  1. TEGRETOL [Suspect]
     Indication: PAIN
     Dosage: 100 MG/DAY
     Route: 048
  2. HYPEN [Concomitant]
  3. VOLTAREN [Concomitant]
     Route: 062
  4. FLUCAM [Concomitant]

REACTIONS (2)
  - INCONTINENCE [None]
  - MOVEMENT DISORDER [None]
